FAERS Safety Report 23464490 (Version 1)
Quarter: 2024Q1

REPORT INFORMATION
  Report Type: Other
  Country: GB (occurrence: GB)
  Receive Date: 20240201
  Receipt Date: 20240201
  Transmission Date: 20240410
  Serious: Yes (Disabling, Other)
  Sender: FDA-Public Use
  Company Number: None

PATIENT
  Sex: Female

DRUGS (1)
  1. DEFERIPRONE [Suspect]
     Active Substance: DEFERIPRONE
     Indication: Product used for unknown indication
     Dosage: 1.5 GRAM, TID

REACTIONS (4)
  - Eye pain [Recovering/Resolving]
  - Depressed mood [Not Recovered/Not Resolved]
  - Suicidal ideation [Not Recovered/Not Resolved]
  - Migraine [Recovering/Resolving]

NARRATIVE: CASE EVENT DATE: 20180406
